FAERS Safety Report 12906868 (Version 2)
Quarter: 2016Q4

REPORT INFORMATION
  Report Type: Spontaneous
  Country: US (occurrence: US)
  Receive Date: 20161103
  Receipt Date: 20161212
  Transmission Date: 20170207
  Serious: Yes (Other)
  Sender: FDA-Public Use
  Company Number: US-PFIZER INC-2016502078

PATIENT
  Age: 21 Year
  Sex: Male
  Weight: 94.3 kg

DRUGS (20)
  1. OLANZAPINE. [Concomitant]
     Active Substance: OLANZAPINE
  2. PEG/L-ASPARAGINASE [Suspect]
     Active Substance: PEGASPARGASE
     Indication: ACUTE LYMPHOCYTIC LEUKAEMIA RECURRENT
     Dosage: UNK (2000 U/M2 IV OVER 1-2 HOURS; DAYS: 15)
     Route: 042
  3. LEUCOVORIN. [Suspect]
     Active Substance: LEUCOVORIN
     Indication: ACUTE LYMPHOCYTIC LEUKAEMIA RECURRENT
     Dosage: 25 MG, UNK (EVERY 6 HOURS, BEGAN 24 HRS FROM START OF EACH MTX)
     Route: 042
  4. VALACYCLOVIR HCL [Concomitant]
     Active Substance: VALACYCLOVIR HYDROCHLORIDE
     Dosage: 500 MG, DAILY (3 IN 1 D)
  5. METHOTREXATE SODIUM. [Suspect]
     Active Substance: METHOTREXATE SODIUM
     Dosage: 3.5 G/M2 (DAYS 8 AND 15)
     Route: 037
  6. PEG/L-ASPARAGINASE [Suspect]
     Active Substance: PEGASPARGASE
     Dosage: UNK (2000 U/M2 IV OVER 1-2 HOURS; DAYS: 15)
     Route: 042
  7. DAPSONE. [Concomitant]
     Active Substance: DAPSONE
     Dosage: 100 MG, DAILY
     Route: 048
  8. VINCRISTINE SULFATE. [Suspect]
     Active Substance: VINCRISTINE SULFATE
     Indication: ACUTE LYMPHOCYTIC LEUKAEMIA RECURRENT
     Dosage: 1.4 MG/M2, UNK (IV PUSH ON DAYS 1, 15, 29 AND 43)
     Route: 042
  9. CYTARABINE. [Suspect]
     Active Substance: CYTARABINE
     Indication: ACUTE LYMPHOCYTIC LEUKAEMIA RECURRENT
     Dosage: 75 MG/M2, UNK (ON DAYS 1-4, 8-11, 29-32 AND 36-39)
     Route: 042
  10. METHOTREXATE SODIUM. [Suspect]
     Active Substance: METHOTREXATE SODIUM
     Indication: ACUTE LYMPHOCYTIC LEUKAEMIA RECURRENT
     Dosage: 12 MG, UNK (1, 15, 29, 43)
     Route: 037
  11. PREDNISONE. [Suspect]
     Active Substance: PREDNISONE
     Indication: ACUTE LYMPHOCYTIC LEUKAEMIA RECURRENT
     Dosage: 20 MG, UNK (15-22 1 IN 1 CYCLICAL)
     Route: 048
  12. PREDNISONE. [Suspect]
     Active Substance: PREDNISONE
     Dosage: 5 MG, ALTERNATE DAY (EVERY OTHER DAY)
     Route: 048
  13. PREDNISONE. [Suspect]
     Active Substance: PREDNISONE
     Dosage: 60 MG/M2, UNK (ON DAYS 1-28)
     Route: 048
  14. DAUNORUBICIN [Suspect]
     Active Substance: DAUNORUBICIN
     Indication: ACUTE LYMPHOCYTIC LEUKAEMIA RECURRENT
     Dosage: 60 MG/M2, UNK (IV PUSH ON DAYS 1, 2 AND 3)
     Route: 042
  15. ETOPOSIDE. [Concomitant]
     Active Substance: ETOPOSIDE
     Indication: BONE MARROW CONDITIONING REGIMEN
  16. POSACONAZOLE [Concomitant]
     Active Substance: POSACONAZOLE
     Dosage: 300 MG, DAILY (3 IN 1 D)
  17. FLUOCINOLONE ACETONIDE. [Concomitant]
     Active Substance: FLUOCINOLONE ACETONIDE
     Dosage: 5 ML, DAILY (1 IN 1 D)
  18. CYCLOPHOSPHAMIDE. [Suspect]
     Active Substance: CYCLOPHOSPHAMIDE
     Indication: ACUTE LYMPHOCYTIC LEUKAEMIA RECURRENT
     Dosage: 1 G/M2
     Route: 042
  19. MERCAPTOPURINE. [Suspect]
     Active Substance: MERCAPTOPURINE
     Indication: ACUTE LYMPHOCYTIC LEUKAEMIA RECURRENT
     Dosage: 60 MG/M2, UNK ON DAYS 1-14 AND 29-42)
     Route: 048
  20. ZYPREXA [Concomitant]
     Active Substance: OLANZAPINE

REACTIONS (20)
  - Escherichia bacteraemia [Unknown]
  - Epstein-Barr viraemia [Unknown]
  - Anorectal infection bacterial [Unknown]
  - Fatigue [Recovering/Resolving]
  - Vomiting [Unknown]
  - Somnolence [Unknown]
  - Hyperlipidaemia [Unknown]
  - Neutropenia [Recovered/Resolved]
  - Febrile neutropenia [Unknown]
  - Arthralgia [Recovered/Resolved]
  - Neoplasm progression [Unknown]
  - Gastrointestinal inflammation [Unknown]
  - Schizophrenia [Unknown]
  - Klebsiella infection [Unknown]
  - Vitiligo [Unknown]
  - Decreased appetite [Unknown]
  - Graft versus host disease in skin [Unknown]
  - Pancytopenia [Not Recovered/Not Resolved]
  - Nausea [Recovered/Resolved]
  - Hypomagnesaemia [Recovered/Resolved]

NARRATIVE: CASE EVENT DATE: 20150713
